FAERS Safety Report 22015148 (Version 1)
Quarter: 2023Q1

REPORT INFORMATION
  Report Type: Spontaneous
  Country: US (occurrence: None)
  Receive Date: 20230221
  Receipt Date: 20230221
  Transmission Date: 20230418
  Serious: No
  Sender: FDA-Public Use
  Company Number: 2023A030527

PATIENT
  Age: 25941 Day
  Sex: Female
  Weight: 64.4 kg

DRUGS (1)
  1. BUDESONIDE\FORMOTEROL\GLYCOPYRRONIUM [Suspect]
     Active Substance: BUDESONIDE\FORMOTEROL\GLYCOPYRRONIUM
     Indication: Chronic obstructive pulmonary disease
     Dosage: 160/9/4.8 MCG, 2 PUFFS 2 TIMES A DAY
     Route: 055
     Dates: start: 202212

REACTIONS (5)
  - Dyspnoea [Unknown]
  - Chronic obstructive pulmonary disease [Unknown]
  - Intentional device misuse [Unknown]
  - Incorrect dose administered by device [Unknown]
  - Physical product label issue [Unknown]

NARRATIVE: CASE EVENT DATE: 20230201
